FAERS Safety Report 24637167 (Version 1)
Quarter: 2024Q4

REPORT INFORMATION
  Report Type: Spontaneous
  Country: US (occurrence: US)
  Receive Date: 20241119
  Receipt Date: 20241119
  Transmission Date: 20250115
  Serious: Yes (Hospitalization, Other)
  Sender: BRISTOL-MYERS SQUIBB COMPANY
  Company Number: US-BRISTOL-MYERS SQUIBB COMPANY-2024-177200

PATIENT
  Age: 79 Year
  Sex: Male

DRUGS (1)
  1. REVLIMID [Suspect]
     Active Substance: LENALIDOMIDE
     Indication: Follicular lymphoma
     Dosage: DAILY X 21 DAYS
     Route: 048
     Dates: start: 20241014

REACTIONS (3)
  - Salmonellosis [Unknown]
  - Escherichia infection [Unknown]
  - Bacterial food poisoning [Unknown]

NARRATIVE: CASE EVENT DATE: 20241111
